FAERS Safety Report 9357477 (Version 1)
Quarter: 2013Q2

REPORT INFORMATION
  Report Type: Spontaneous
  Country: US (occurrence: None)
  Receive Date: 20130617
  Receipt Date: 20130617
  Transmission Date: 20140414
  Serious: Yes (Death, Other)
  Sender: FDA-Public Use
  Company Number: 1306-752

PATIENT
  Sex: Female

DRUGS (1)
  1. EYLEA (AFLIBERCEPT)(AFLIBERCEPT) INJECTION [Suspect]

REACTIONS (1)
  - Pulmonary hypertension [None]
